FAERS Safety Report 7538339-3 (Version None)
Quarter: 2011Q2

REPORT INFORMATION
  Report Type: 
  Country: None (occurrence: None)
  Receive Date: 20110609
  Receipt Date: 20110608
  Transmission Date: 20111010
  Serious: Yes (Hospitalization)
  Sender: FDA-Public Use
  Company Number: US-PFIZER INC-2011124927

PATIENT
  Age: 35 Year
  Sex: Female

DRUGS (7)
  1. RISPERIDONE [Suspect]
     Dosage: 4 MG, 3X/DAY
     Route: 048
  2. PERPHENAZINE [Suspect]
     Dosage: 16 MG, 3X/DAY
     Route: 048
  3. VALPROIC ACID [Suspect]
     Dosage: 1500 MG, EVERY NIGHT
     Route: 048
  4. BENZTROPINE MESYLATE [Suspect]
     Indication: EXTRAPYRAMIDAL DISORDER
     Dosage: 1 MG, 3X/DAY
     Route: 048
  5. HALOPERIDOL [Suspect]
     Indication: AGITATION
     Dosage: 5 MG, AS NEEDED
  6. OLANZAPINE [Suspect]
     Dosage: 20 MG, 2X/DAY
     Route: 048
  7. LITHIUM CARBONATE [Suspect]
     Dosage: 600 MG, 2X/DAY
     Route: 048

REACTIONS (1)
  - ILEUS PARALYTIC [None]
